FAERS Safety Report 24434330 (Version 2)
Quarter: 2024Q4

REPORT INFORMATION
  Report Type: Spontaneous
  Country: IT (occurrence: IT)
  Receive Date: 20241014
  Receipt Date: 20241018
  Transmission Date: 20250114
  Serious: Yes (Other)
  Sender: GILEAD
  Company Number: IT-GILEAD-2024-0690791

PATIENT
  Sex: Male

DRUGS (1)
  1. TECARTUS [Suspect]
     Active Substance: BREXUCABTAGENE AUTOLEUCEL
     Indication: Mantle cell lymphoma
     Dosage: UNK
     Route: 042
     Dates: start: 20240930, end: 20240930

REACTIONS (1)
  - Tumour flare [Recovered/Resolved]

NARRATIVE: CASE EVENT DATE: 20241001
